FAERS Safety Report 19566583 (Version 3)
Quarter: 2022Q1

REPORT INFORMATION
  Report Type: Spontaneous
  Country: JP (occurrence: JP)
  Receive Date: 20210714
  Receipt Date: 20220203
  Transmission Date: 20220424
  Serious: Yes (Death, Other)
  Sender: FDA-Public Use
  Company Number: JP-CHUGAI-2021005266AA

PATIENT
  Age: 8 Decade

DRUGS (2)
  1. TECENTRIQ [Suspect]
     Active Substance: ATEZOLIZUMAB
     Indication: Hepatocellular carcinoma
     Route: 041
  2. AVASTIN [Suspect]
     Active Substance: BEVACIZUMAB
     Indication: Hepatocellular carcinoma
     Route: 041

REACTIONS (4)
  - Renal impairment [Not Recovered/Not Resolved]
  - Proteinuria [Recovering/Resolving]
  - Myocardial infarction [Fatal]
  - Shock [Unknown]

NARRATIVE: CASE EVENT DATE: 20220101
